FAERS Safety Report 7056832-7 (Version None)
Quarter: 2010Q4

REPORT INFORMATION
  Report Type: 
  Country: None (occurrence: None)
  Receive Date: 20101022
  Receipt Date: 20100521
  Transmission Date: 20110411
  Serious: No
  Sender: FDA-Public Use
  Company Number: A0860863A

PATIENT
  Age: 64 Year
  Sex: Female

DRUGS (4)
  1. DUAC [Suspect]
     Indication: ACNE
     Dosage: 1APP AS REQUIRED
     Route: 061
     Dates: start: 20100101, end: 20100521
  2. UNSPECIFIED MEDICATION [Concomitant]
     Indication: LOCAL SWELLING
  3. LASER TREATMENT [Concomitant]
  4. NEXIUM [Concomitant]

REACTIONS (1)
  - IMPAIRED WORK ABILITY [None]
